FAERS Safety Report 16046049 (Version 1)
Quarter: 2019Q1

REPORT INFORMATION
  Report Type: Spontaneous
  Country: US (occurrence: US)
  Receive Date: 20190207
  Receipt Date: 20190207
  Transmission Date: 20190418
  Serious: Yes (Hospitalization)
  Sender: FDA-Public Use
  Company Number: None

PATIENT
  Age: 84 Year
  Sex: Male
  Weight: 72 kg

DRUGS (1)
  1. LEVOFLOXACIN. [Suspect]
     Active Substance: LEVOFLOXACIN
     Indication: SYNOVITIS
     Route: 042
     Dates: start: 20181121, end: 20181125

REACTIONS (4)
  - Confusional state [None]
  - Delirium [None]
  - Mental status changes [None]
  - Agitation [None]

NARRATIVE: CASE EVENT DATE: 20181125
